FAERS Safety Report 7071367-3 (Version None)
Quarter: 2010Q4

REPORT INFORMATION
  Report Type: 
  Country: None (occurrence: None)
  Receive Date: 20101029
  Receipt Date: 20100430
  Transmission Date: 20110411
  Serious: No
  Sender: FDA-Public Use
  Company Number: A0540097A

PATIENT
  Sex: Female

DRUGS (3)
  1. ADVAIR DISKUS 100/50 [Suspect]
     Dosage: 1PUFF TWICE PER DAY
     Route: 055
  2. ZESTRIL [Concomitant]
     Dosage: 20MG PER DAY
  3. NORVASC [Concomitant]
     Dosage: 5MG PER DAY

REACTIONS (11)
  - BLOOD PRESSURE INCREASED [None]
  - BONE DENSITY DECREASED [None]
  - DRUG INEFFECTIVE [None]
  - DRY MOUTH [None]
  - FEELING HOT [None]
  - NASOPHARYNGITIS [None]
  - ORAL MUCOSAL DISCOLOURATION [None]
  - PERIPHERAL COLDNESS [None]
  - TONGUE DRY [None]
  - VISION BLURRED [None]
  - WEIGHT DECREASED [None]
